FAERS Safety Report 14125898 (Version 1)
Quarter: 2017Q4

REPORT INFORMATION
  Report Type: Spontaneous
  Country: US (occurrence: US)
  Receive Date: 20171025
  Receipt Date: 20171025
  Transmission Date: 20180321
  Serious: No
  Sender: FDA-Public Use
  Company Number: US-009507513-1710USA004892

PATIENT
  Sex: Female

DRUGS (6)
  1. ZEPATIER [Suspect]
     Active Substance: ELBASVIR\GRAZOPREVIR
     Indication: HEPATITIS C
     Dosage: 1 TABLET, EVERY DAY
     Route: 048
     Dates: start: 201709
  2. ROBAXIN [Concomitant]
     Active Substance: METHOCARBAMOL
  3. VENLAFAXINE HYDROCHLORIDE. [Concomitant]
     Active Substance: VENLAFAXINE HYDROCHLORIDE
  4. CLONAZEPAM. [Concomitant]
     Active Substance: CLONAZEPAM
  5. ADVIL [Concomitant]
     Active Substance: IBUPROFEN
  6. GABAPENTIN. [Concomitant]
     Active Substance: GABAPENTIN

REACTIONS (7)
  - Oropharyngeal pain [Recovered/Resolved]
  - Poor quality sleep [Unknown]
  - Tongue discomfort [Recovered/Resolved]
  - Migraine [Unknown]
  - Decreased appetite [Unknown]
  - Gingival swelling [Unknown]
  - Fatigue [Unknown]

NARRATIVE: CASE EVENT DATE: 2017
